FAERS Safety Report 6309744-8 (Version None)
Quarter: 2009Q3

REPORT INFORMATION
  Report Type: 
  Country: None (occurrence: None)
  Receive Date: 20090814
  Receipt Date: 20090812
  Transmission Date: 20100115
  Serious: Yes (Death, Other)
  Sender: FDA-Public Use
  Company Number: US-ROXANE LABORATORIES, INC.-2009-RO-00820RO

PATIENT
  Age: 34 Year
  Sex: Female

DRUGS (5)
  1. CITALOPRAM HYDROBROMIDE [Suspect]
  2. OPANA [Suspect]
     Route: 045
     Dates: start: 20090313, end: 20090313
  3. METHAMPHETAMINE [Suspect]
  4. CAFFEINE CITRATE [Concomitant]
  5. NICOTINE [Concomitant]

REACTIONS (5)
  - DRUG ABUSE [None]
  - INCORRECT ROUTE OF DRUG ADMINISTRATION [None]
  - INTENTIONAL DRUG MISUSE [None]
  - MULTIPLE DRUG OVERDOSE [None]
  - VISCERAL OEDEMA [None]
